FAERS Safety Report 4431717-0 (Version None)
Quarter: 2004Q3

REPORT INFORMATION
  Report Type: 
  Country: None (occurrence: None)
  Receive Date: 20040820
  Receipt Date: 20040820
  Transmission Date: 20050211
  Serious: Yes (Hospitalization)
  Sender: FDA-Public Use
  Company Number: None

PATIENT
  Age: 70 Year
  Sex: Male
  Weight: 54.4316 kg

DRUGS (9)
  1. TAXOTERE [Suspect]
     Indication: NON-SMALL CELL LUNG CANCER
     Dosage: 20 MG/M2/WK IV
     Route: 042
     Dates: start: 20040614, end: 20040719
  2. CARBOPLATIN [Suspect]
     Indication: NON-SMALL CELL LUNG CANCER
     Dosage: AUC 2 Q WK X 7
     Dates: start: 20040614, end: 20040719
  3. XANAX [Concomitant]
  4. PREVACID [Concomitant]
  5. ADVAIR IHN [Concomitant]
  6. ALBUTEROL [Concomitant]
  7. COMBIVENT IHN [Concomitant]
  8. LORTAB [Concomitant]
  9. CARAFATE [Concomitant]

REACTIONS (5)
  - ASTHENIA [None]
  - CHEST PAIN [None]
  - ELECTROLYTE IMBALANCE [None]
  - ODYNOPHAGIA [None]
  - URINE OUTPUT DECREASED [None]
